FAERS Safety Report 8801835 (Version 2)
Quarter: 2012Q4

REPORT INFORMATION
  Report Type: 
  Country: IT (occurrence: IT)
  Receive Date: 20120921
  Receipt Date: 20121010
  Transmission Date: 20130627
  Serious: Yes (Life-Threatening)
  Sender: FDA-Public Use
  Company Number: IT-SANOFI-AVENTIS-2012SA066451

PATIENT
  Age: 54 Year
  Sex: Male

DRUGS (5)
  1. LANTUS [Suspect]
     Indication: SUICIDE ATTEMPT
     Dosage: Dose: nos
     Route: 058
     Dates: start: 20120908, end: 20120908
  2. NOVORAPID [Suspect]
     Indication: SUICIDE ATTEMPT
     Dosage: Dose: nos
     Route: 058
     Dates: start: 20120908, end: 20120908
  3. DELORAZEPAM [Concomitant]
  4. SERETIDE [Concomitant]
  5. SPIRIVA [Concomitant]

REACTIONS (2)
  - Hypokalaemia [Recovering/Resolving]
  - Hypoglycaemic coma [Recovering/Resolving]
